FAERS Safety Report 11663128 (Version 1)
Quarter: 2015Q4

REPORT INFORMATION
  Report Type: Spontaneous
  Country: US (occurrence: US)
  Receive Date: 20151027
  Receipt Date: 20151027
  Transmission Date: 20160304
  Serious: No
  Sender: FDA-Public Use
  Company Number: US-MEDA-2012040160

PATIENT
  Age: 47 Year
  Sex: Female
  Weight: 50 kg

DRUGS (14)
  1. EDLUAR [Suspect]
     Active Substance: ZOLPIDEM TARTRATE
     Indication: NARCOLEPSY
     Route: 060
     Dates: start: 2011
  2. TIZANIDINE. [Concomitant]
     Active Substance: TIZANIDINE
     Indication: FIBROMYALGIA
     Route: 048
     Dates: start: 201204
  3. BIOTIN [Concomitant]
     Active Substance: BIOTIN
     Indication: SUPPLEMENTATION THERAPY
     Route: 048
  4. COENZYME Q10 [Concomitant]
     Active Substance: UBIDECARENONE
     Indication: SUPPLEMENTATION THERAPY
     Route: 048
  5. NAC N-ACETYL CYSTEINE [Concomitant]
     Indication: SUPPLEMENTATION THERAPY
     Route: 048
  6. HYALURONIC ACID [Concomitant]
     Active Substance: HYALURONIC ACID
     Indication: SUPPLEMENTATION THERAPY
     Route: 048
  7. XYREM [Suspect]
     Active Substance: SODIUM OXYBATE
     Indication: NARCOLEPSY
     Route: 048
     Dates: start: 201101
  8. SYNTHROID [Concomitant]
     Active Substance: LEVOTHYROXINE SODIUM
     Indication: HYPOTHYROIDISM
     Route: 048
  9. PENNSAID [Concomitant]
     Active Substance: DICLOFENAC SODIUM
     Indication: FIBROMYALGIA
     Route: 061
     Dates: start: 2011
  10. CALCIUM [Concomitant]
     Active Substance: CALCIUM
     Indication: SUPPLEMENTATION THERAPY
     Route: 048
  11. CRANBERRY. [Concomitant]
     Active Substance: CRANBERRY
     Indication: SUPPLEMENTATION THERAPY
     Route: 048
  12. ZETIA [Concomitant]
     Active Substance: EZETIMIBE
     Indication: HYPERCHOLESTEROLAEMIA
     Route: 048
  13. PHRENILLIN [Concomitant]
     Indication: FIBROMYALGIA
     Dosage: 50/325 MG
     Route: 048
     Dates: start: 2011
  14. EVENING PRIMROSE OIL [Concomitant]
     Active Substance: EVENING PRIMROSE OIL
     Indication: SUPPLEMENTATION THERAPY
     Route: 048

REACTIONS (3)
  - Off label use [Not Recovered/Not Resolved]
  - Cystitis [Not Recovered/Not Resolved]
  - Impaired gastric emptying [Not Recovered/Not Resolved]

NARRATIVE: CASE EVENT DATE: 2011
